FAERS Safety Report 5893298-4 (Version None)
Quarter: 2008Q3

REPORT INFORMATION
  Report Type: 
  Country: None (occurrence: None)
  Receive Date: 20080923
  Receipt Date: 20080919
  Transmission Date: 20090109
  Serious: Yes (Death, Hospitalization)
  Sender: FDA-Public Use
  Company Number: B0431768A

PATIENT
  Age: 53 Year
  Sex: Female

DRUGS (8)
  1. FLOLAN [Suspect]
     Indication: PULMONARY ARTERIAL HYPERTENSION
     Route: 042
     Dates: start: 20010324
  2. TRACLEER [Suspect]
     Dosage: 62.5MG TWICE PER DAY
     Dates: start: 20060410
  3. LANSOPRAZOLE [Concomitant]
  4. NATRIX [Concomitant]
  5. NAUZELIN [Concomitant]
  6. TRACLEER [Concomitant]
  7. MAGNESIUM OXIDE [Concomitant]
  8. PENTAZOCINE LACTATE [Concomitant]

REACTIONS (4)
  - BACK PAIN [None]
  - CHEST PAIN [None]
  - CONSTIPATION [None]
  - LUNG TRANSPLANT REJECTION [None]
